FAERS Safety Report 5848292-6 (Version None)
Quarter: 2008Q3

REPORT INFORMATION
  Report Type: 
  Country: None (occurrence: None)
  Receive Date: 20080814
  Receipt Date: 20080730
  Transmission Date: 20090109
  Serious: Yes (Hospitalization)
  Sender: FDA-Public Use
  Company Number: B0528700A

PATIENT
  Age: 69 Year
  Sex: Male

DRUGS (1)
  1. AMOXICILLIN TRIHYDRATE + POTASASIUM CLAVULANATE (FORMULATION (AMOX.TRI [Suspect]

REACTIONS (2)
  - CHOLESTASIS [None]
  - HEPATOTOXICITY [None]
